FAERS Safety Report 17516749 (Version 1)
Quarter: 2020Q1

REPORT INFORMATION
  Report Type: Spontaneous
  Country: US (occurrence: US)
  Receive Date: 20200227
  Receipt Date: 20200227
  Transmission Date: 20200409
  Serious: No
  Sender: FDA-Public Use
  Company Number: None

PATIENT
  Age: 15 Year
  Sex: Male
  Weight: .45 kg

DRUGS (1)
  1. PHENYTOIN 125MG/5ML [Suspect]
     Active Substance: PHENYTOIN SODIUM
     Indication: PARTIAL SEIZURES
     Route: 048
     Dates: start: 201808, end: 201908

REACTIONS (4)
  - Incorrect dose administered [None]
  - Recalled product administered [None]
  - Failure to suspend medication [None]
  - Drug level fluctuating [None]

NARRATIVE: CASE EVENT DATE: 20190809
